FAERS Safety Report 7820677-8 (Version None)
Quarter: 2011Q4

REPORT INFORMATION
  Report Type: 
  Country: None (occurrence: None)
  Receive Date: 20111013
  Receipt Date: 20111001
  Transmission Date: 20120403
  Serious: Yes (Life-Threatening, Other)
  Sender: FDA-Public Use
  Company Number: OMPQ-NO-1110S-1169

PATIENT
  Age: 46 Year
  Sex: Female

DRUGS (2)
  1. OMNIPAQUE 70 [Suspect]
     Indication: RECTAL PROLAPSE
     Dosage: 80 ML, SINGLE DOSE, INTRAVENOUS
     Route: 042
     Dates: start: 20111001, end: 20111001
  2. ORAL HYPOGLYCAEMIC AGENTS (TARAXACUM OFFICINALE) [Concomitant]

REACTIONS (4)
  - CHILLS [None]
  - CHEST DISCOMFORT [None]
  - DYSPNOEA [None]
  - BLOOD PRESSURE IMMEASURABLE [None]
